FAERS Safety Report 4570270-8 (Version None)
Quarter: 2005Q1

REPORT INFORMATION
  Report Type: 
  Country: None (occurrence: None)
  Receive Date: 20050202
  Receipt Date: 20050120
  Transmission Date: 20050727
  Serious: Yes (Congenital Anomaly)
  Sender: FDA-Public Use
  Company Number: 8008636

PATIENT

DRUGS (1)
  1. KEPPRA [Suspect]
     Dosage: TRP
     Route: 064

REACTIONS (2)
  - CONGENITAL ANAEMIA [None]
  - DRUG EXPOSURE DURING PREGNANCY [None]
